FAERS Safety Report 9604540 (Version 2)
Quarter: 2013Q4

REPORT INFORMATION
  Report Type: Spontaneous
  Country: DK (occurrence: DK)
  Receive Date: 20131008
  Receipt Date: 20131024
  Transmission Date: 20140711
  Serious: Yes (Death, Hospitalization, Other)
  Sender: FDA-Public Use
  Company Number: DK-ELI_LILLY_AND_COMPANY-DK201309009938

PATIENT
  Age: 63 Year
  Sex: Male

DRUGS (7)
  1. ZYPREXA [Suspect]
     Dosage: 5 MG, PRN
  2. ZYPREXA [Suspect]
     Dosage: 5 MG, TID
  3. ZYPREXA [Suspect]
     Dosage: 20 MG, EACH EVENING
     Dates: start: 20111107
  4. ZYPREXA [Suspect]
     Dosage: 5 MG, PRN
     Dates: start: 20111107
  5. ZYPREXA [Suspect]
     Dosage: 55 MG, PRN
  6. RISPERDAL [Concomitant]
     Dosage: 50 MG, OTHER
  7. LITHIUM [Concomitant]

REACTIONS (9)
  - Toxicity to various agents [Fatal]
  - Pneumonia [Fatal]
  - Kidney infection [Fatal]
  - Mania [Unknown]
  - Fall [Unknown]
  - Eye injury [Unknown]
  - Confusional state [Unknown]
  - Hypersomnia [Unknown]
  - Overdose [Unknown]
